FAERS Safety Report 4341923-1 (Version None)
Quarter: 2004Q2

REPORT INFORMATION
  Report Type: 
  Country: None (occurrence: None)
  Receive Date: 20040415
  Receipt Date: 20040323
  Transmission Date: 20050107
  Serious: Yes (Disabling)
  Sender: FDA-Public Use
  Company Number: TR 2004 0001

PATIENT
  Age: 77 Year
  Sex: Male

DRUGS (7)
  1. OXILAN-IOXILAN [Suspect]
     Indication: ARTERIOGRAM CORONARY
     Dosage: 100 MG PER DAY INTRAVEINOUS
     Dates: start: 20040315, end: 20040315
  2. STATINE [Concomitant]
  3. ACETYLCYSTEINE [Concomitant]
  4. BETA BLOCKER [Concomitant]
  5. ACE INHIBITOR [Concomitant]
  6. CARBAMAZEPINE [Concomitant]
  7. ASPIRIN [Concomitant]

REACTIONS (8)
  - BACTERAEMIA [None]
  - BLOOD CREATINE INCREASED [None]
  - DIZZINESS [None]
  - FEELING ABNORMAL [None]
  - HAEMATOCRIT DECREASED [None]
  - PROCEDURAL COMPLICATION [None]
  - TREMOR [None]
  - VOMITING [None]
